FAERS Safety Report 9254584 (Version 1)
Quarter: 2013Q2

REPORT INFORMATION
  Report Type: Spontaneous
  Country: JP (occurrence: JP)
  Receive Date: 20130425
  Receipt Date: 20130425
  Transmission Date: 20140414
  Serious: Yes (Other)
  Sender: FDA-Public Use
  Company Number: JP-ASTELLAS-2013JP005373

PATIENT
  Age: 41 Year
  Sex: Male

DRUGS (6)
  1. PROGRAF [Suspect]
     Indication: VASCULITIS
     Dosage: UNK
     Route: 065
     Dates: start: 200510
  2. NSAID^S [Concomitant]
     Indication: PARVOVIRUS INFECTION
     Route: 065
  3. GAMMA-GLOBULIN [Concomitant]
     Indication: PARVOVIRUS INFECTION
     Route: 065
  4. GAMMA-GLOBULIN [Concomitant]
     Route: 065
  5. PREDNISOLONE [Concomitant]
     Dosage: 30 MG, UNKNOWN/D
     Route: 065
     Dates: start: 200504
  6. CALCIUM ANTAGONIST [Concomitant]
     Route: 065

REACTIONS (2)
  - Drug ineffective for unapproved indication [Unknown]
  - Vasculitis [Unknown]
